FAERS Safety Report 17395988 (Version 1)
Quarter: 2020Q1

REPORT INFORMATION
  Report Type: Spontaneous
  Country: US (occurrence: US)
  Receive Date: 20200207
  Receipt Date: 20200207
  Transmission Date: 20200409
  Serious: Yes (Other)
  Sender: FDA-Public Use
  Company Number: None

PATIENT
  Age: 60 Year
  Sex: Male
  Weight: 102.15 kg

DRUGS (2)
  1. LISINOPRIL 10 MG [Suspect]
     Active Substance: LISINOPRIL
     Indication: HYPERTENSION
     Dosage: ?          QUANTITY:90 TABLET(S);?
     Route: 048
     Dates: start: 20191224, end: 20191225
  2. LISINOPRIL. [Concomitant]
     Active Substance: LISINOPRIL

REACTIONS (3)
  - Therapy cessation [None]
  - Heart rate increased [None]
  - Blood pressure decreased [None]

NARRATIVE: CASE EVENT DATE: 20191224
